FAERS Safety Report 8902871 (Version 1)
Quarter: 2012Q4

REPORT INFORMATION
  Report Type: 
  Country: US (occurrence: US)
  Receive Date: 20121112
  Receipt Date: 20121112
  Transmission Date: 20130627
  Serious: No
  Sender: FDA-Public Use
  Company Number: US-PFIZER INC-2012280197

PATIENT
  Sex: Female

DRUGS (3)
  1. LYRICA [Suspect]
     Indication: NEURALGIA
     Dosage: UNK
  2. LYRICA [Suspect]
     Indication: MYALGIA
  3. LYRICA [Suspect]
     Indication: FOOT PAIN

REACTIONS (3)
  - Drug ineffective [Unknown]
  - Erythema [Unknown]
  - Hot flush [Unknown]
